FAERS Safety Report 9842230 (Version 1)
Quarter: 2014Q1

REPORT INFORMATION
  Report Type: Spontaneous
  Country: US (occurrence: US)
  Receive Date: 20140124
  Receipt Date: 20140124
  Transmission Date: 20141002
  Serious: Yes (Other)
  Sender: FDA-Public Use
  Company Number: US-VIIV HEALTHCARE LIMITED-A1058093A

PATIENT
  Age: 33 Year
  Sex: Male

DRUGS (1)
  1. TRIZIVIR [Suspect]
     Indication: HIV INFECTION
     Route: 065
     Dates: start: 20140106

REACTIONS (2)
  - Lung neoplasm malignant [Unknown]
  - HIV infection [Unknown]
